FAERS Safety Report 6188836-0 (Version None)
Quarter: 2009Q2

REPORT INFORMATION
  Report Type: 
  Country: None (occurrence: None)
  Receive Date: 20090513
  Receipt Date: 20090506
  Transmission Date: 20091009
  Serious: Yes (Other)
  Sender: FDA-Public Use
  Company Number: US-JNJCH-2009012673

PATIENT
  Age: 62 Year
  Sex: Female
  Weight: 63.5 kg

DRUGS (1)
  1. LISTERINE TOOTH DEFENSE [Suspect]
     Indication: DENTAL DISORDER PROPHYLAXIS
     Dosage: TEXT:RECOMMENDED DOSE TWICE A DAY
     Route: 048
     Dates: start: 20090504, end: 20090506

REACTIONS (3)
  - AGEUSIA [None]
  - ORAL DISCOMFORT [None]
  - STOMATITIS [None]
